FAERS Safety Report 8579248-0 (Version None)
Quarter: 2012Q3

REPORT INFORMATION
  Report Type: 
  Country: None (occurrence: None)
  Receive Date: 20120808
  Receipt Date: 20120606
  Transmission Date: 20120928
  Serious: Yes (Death)
  Sender: FDA-Public Use
  Company Number: FR-ROCHE-1095814

PATIENT
  Sex: Male

DRUGS (10)
  1. LEUCOVORIN CALCIUM [Concomitant]
     Dates: start: 20080528, end: 20090301
  2. LEUCOVORIN CALCIUM [Concomitant]
     Dates: start: 20090327, end: 20091112
  3. IRINOTECAN HCL [Concomitant]
     Dates: start: 20090327, end: 20091112
  4. AVASTIN [Suspect]
     Indication: COLON CANCER
     Dates: start: 20090327, end: 20091112
  5. FLUOROURACIL [Concomitant]
     Dates: start: 20080528, end: 20090301
  6. FLUOROURACIL [Concomitant]
     Dates: start: 20090327, end: 20091112
  7. VECTIBIX [Concomitant]
     Dates: start: 20091126, end: 20100318
  8. IRINOTECAN HYDROCHLORIDE [Concomitant]
     Dates: start: 20100401, end: 20100902
  9. IRINOTECAN HCL [Concomitant]
     Dates: start: 20080528, end: 20090301
  10. XELODA [Concomitant]
     Dates: start: 20101001, end: 20110110

REACTIONS (1)
  - DISEASE PROGRESSION [None]
